FAERS Safety Report 20746386 (Version 1)
Quarter: 2022Q2

REPORT INFORMATION
  Report Type: Spontaneous
  Country: US (occurrence: None)
  Receive Date: 20220425
  Receipt Date: 20220425
  Transmission Date: 20220721
  Serious: Yes (Hospitalization)
  Sender: FDA-Public Use
  Company Number: None

PATIENT
  Age: 62 Year
  Sex: Female
  Weight: 74.25 kg

DRUGS (1)
  1. EXTRA STRENGTH ACETAMINOPHEN [Suspect]
     Active Substance: ACETAMINOPHEN
     Indication: Pain
     Route: 048
     Dates: end: 20220314

REACTIONS (9)
  - Asthenia [None]
  - Cold sweat [None]
  - Chest pain [None]
  - Hemiparesis [None]
  - Nerve injury [None]
  - Mobility decreased [None]
  - Hypoaesthesia [None]
  - Hepatic enzyme increased [None]
  - Neuropathy peripheral [None]

NARRATIVE: CASE EVENT DATE: 20220306
